FAERS Safety Report 6800949-6 (Version None)
Quarter: 2010Q2

REPORT INFORMATION
  Report Type: 
  Country: None (occurrence: None)
  Receive Date: 20100629
  Receipt Date: 20100621
  Transmission Date: 20101027
  Serious: Yes (Other)
  Sender: FDA-Public Use
  Company Number: PHHY2010AU40946

PATIENT
  Age: 66 Year
  Sex: Male

DRUGS (6)
  1. TEGRETOL-XR [Suspect]
     Dosage: 1 DF, BID
  2. PANADOL [Concomitant]
     Dosage: UNK,UNK
  3. ATACAND [Concomitant]
     Dosage: UNK,UNK
  4. LIPITOR [Concomitant]
     Dosage: UNK,UNK
  5. SERTRALINE HCL [Concomitant]
     Dosage: UNK,UNK
  6. MINTEC [Concomitant]
     Dosage: UNK,UNK

REACTIONS (3)
  - CONTUSION [None]
  - EPISTAXIS [None]
  - LENTIGO [None]
